FAERS Safety Report 23054076 (Version 1)
Quarter: 2023Q4

REPORT INFORMATION
  Report Type: Other
  Country: MX (occurrence: None)
  Receive Date: 20231011
  Receipt Date: 20231011
  Transmission Date: 20240109
  Serious: Yes (Disabling)
  Sender: FDA-Public Use
  Company Number: MX-ROCHE-3435178

PATIENT
  Age: 64 Year
  Sex: Female

DRUGS (1)
  1. ENSPRYNG [Suspect]
     Active Substance: SATRALIZUMAB-MWGE
     Indication: Neuromyelitis optica spectrum disorder
     Dosage: FREQUENCY WAS NOT REPORTED
     Route: 058

REACTIONS (6)
  - Mobility decreased [Unknown]
  - Ill-defined disorder [Unknown]
  - Investigation abnormal [Unknown]
  - Hypoaesthesia [Unknown]
  - Walking distance test abnormal [Unknown]
  - Sensory disturbance [Unknown]
